FAERS Safety Report 9318275 (Version 1)
Quarter: 2013Q2

REPORT INFORMATION
  Report Type: Spontaneous
  Country: US (occurrence: US)
  Receive Date: 20130530
  Receipt Date: 20130530
  Transmission Date: 20140414
  Serious: No
  Sender: FDA-Public Use
  Company Number: US-NOVEN-12US005644

PATIENT
  Age: 29 Year
  Sex: Female
  Weight: 81.63 kg

DRUGS (5)
  1. DAYTRANA [Suspect]
     Indication: ATTENTION DEFICIT/HYPERACTIVITY DISORDER
     Dosage: 30 MG, UNK
     Dates: start: 201208, end: 201208
  2. DAYTRANA [Suspect]
     Dosage: 1.5X30MG
     Dates: start: 201209, end: 201209
  3. DAYTRANA [Suspect]
     Dosage: 2X30MG
     Dates: start: 201210
  4. WELLBUTRIN XL [Concomitant]
     Indication: DEPRESSION
     Dosage: 300 MG, UNK
     Route: 048
  5. ALPRAZOLAM [Concomitant]
     Indication: ANXIETY
     Dosage: 0.5 MG, PRN AND BID
     Route: 048

REACTIONS (7)
  - Drug administered at inappropriate site [Recovered/Resolved]
  - Drug prescribing error [Not Recovered/Not Resolved]
  - Incorrect drug administration duration [Not Recovered/Not Resolved]
  - Off label use [Not Recovered/Not Resolved]
  - Wrong technique in drug usage process [Not Recovered/Not Resolved]
  - Product quality issue [Not Recovered/Not Resolved]
  - No adverse event [None]
